FAERS Safety Report 6584012-8 (Version None)
Quarter: 2010Q1

REPORT INFORMATION
  Report Type: 
  Country: None (occurrence: None)
  Receive Date: 20100216
  Receipt Date: 20091210
  Transmission Date: 20100710
  Serious: No
  Sender: FDA-Public Use
  Company Number: US-ABBOTT-09P-163-0613583-00

PATIENT
  Sex: Female

DRUGS (1)
  1. SIMCOR [Suspect]
     Indication: DRUG USE FOR UNKNOWN INDICATION
     Dosage: 1 - 500/20 MG TAB DAILY
     Route: 048
     Dates: start: 20091201, end: 20091207

REACTIONS (2)
  - CHEST DISCOMFORT [None]
  - MUSCULOSKELETAL DISCOMFORT [None]
